FAERS Safety Report 11056657 (Version 1)
Quarter: 2015Q2

REPORT INFORMATION
  Report Type: Spontaneous
  Country: IT (occurrence: None)
  Receive Date: 20150417
  Receipt Date: 20150417
  Transmission Date: 20150821
  Serious: Yes (Hospitalization, Other)
  Sender: FDA-Public Use
  Company Number: 2015GMK013339

PATIENT
  Age: 79 Year
  Sex: Male

DRUGS (2)
  1. RILUZOLE (RILUZOLE) [Suspect]
     Active Substance: RILUZOLE
     Indication: AMYOTROPHIC LATERAL SCLEROSIS
  2. IREBESARTAN [Concomitant]

REACTIONS (2)
  - Extra dose administered [None]
  - Pancreatitis acute [None]
